FAERS Safety Report 7918046-5 (Version None)
Quarter: 2011Q4

REPORT INFORMATION
  Report Type: 
  Country: None (occurrence: None)
  Receive Date: 20111116
  Receipt Date: 20111114
  Transmission Date: 20120403
  Serious: Yes (Hospitalization)
  Sender: FDA-Public Use
  Company Number: DE-MERCK-1111DEU00084

PATIENT
  Age: 62 Year
  Sex: Male

DRUGS (1)
  1. JANUMET [Suspect]
     Indication: DIABETES MELLITUS
     Route: 048
     Dates: start: 20110215, end: 20111108

REACTIONS (4)
  - GLOMERULOSCLEROSIS [None]
  - OEDEMA [None]
  - GLOMERULONEPHROPATHY [None]
  - HYPONATRAEMIA [None]
